FAERS Safety Report 8321305-8 (Version None)
Quarter: 2012Q2

REPORT INFORMATION
  Report Type: 
  Country: None (occurrence: None)
  Receive Date: 20120430
  Receipt Date: 20120423
  Transmission Date: 20120825
  Serious: Yes (Other)
  Sender: FDA-Public Use
  Company Number: CA-UCBSA-048269

PATIENT
  Age: 65 Year
  Sex: Female
  Weight: 55 kg

DRUGS (7)
  1. METHOTREXATE [Concomitant]
     Indication: RHEUMATOID ARTHRITIS
     Route: 048
  2. FOLIC ACID [Concomitant]
     Indication: ROUTINE HEALTH MAINTENANCE
     Dosage: NO OF INTAKES 5/7 DAYS
     Route: 048
  3. CRESTOR [Concomitant]
     Indication: HYPERCHOLESTEROLAEMIA
     Route: 048
  4. CIMZIA [Suspect]
     Indication: RHEUMATOID ARTHRITIS
     Route: 058
     Dates: start: 20110517
  5. NORVASC [Concomitant]
     Indication: HYPERTENSION
     Route: 048
  6. CIMZIA [Suspect]
     Route: 058
     Dates: start: 20110322, end: 20110427
  7. ALTACE [Concomitant]
     Indication: HYPERTENSION
     Route: 048

REACTIONS (2)
  - PNEUMONIA [None]
  - VOMITING [None]
